FAERS Safety Report 10439210 (Version 1)
Quarter: 2014Q3

REPORT INFORMATION
  Report Type: Spontaneous
  Country: US (occurrence: US)
  Receive Date: 20140908
  Receipt Date: 20140908
  Transmission Date: 20150326
  Serious: No
  Sender: FDA-Public Use
  Company Number: US-BRISTOL-MYERS SQUIBB COMPANY-21206115

PATIENT
  Age: 53 Year
  Sex: Female
  Weight: 90.7 kg

DRUGS (3)
  1. KLONOPIN [Concomitant]
     Active Substance: CLONAZEPAM
  2. ABILIFY [Suspect]
     Active Substance: ARIPIPRAZOLE
     Indication: DEPRESSION
  3. PROZAC [Concomitant]
     Active Substance: FLUOXETINE HYDROCHLORIDE

REACTIONS (1)
  - Palpitations [Recovered/Resolved]
